FAERS Safety Report 17054034 (Version 1)
Quarter: 2019Q4

REPORT INFORMATION
  Report Type: Spontaneous
  Country: CA (occurrence: CA)
  Receive Date: 20191120
  Receipt Date: 20191120
  Transmission Date: 20200122
  Serious: Yes (Death, Other)
  Sender: FDA-Public Use
  Company Number: CA-PFIZER INC-2019498507

PATIENT
  Age: 75 Year
  Sex: Male
  Weight: 68 kg

DRUGS (11)
  1. ESBRIET [Suspect]
     Active Substance: PIRFENIDONE
     Dosage: 267.0 MG, THRICE DAILY
     Route: 065
  2. RABEPRAZOLE [Concomitant]
     Active Substance: RABEPRAZOLE
     Dosage: UNK
  3. METFORMIN [Concomitant]
     Active Substance: METFORMIN HYDROCHLORIDE
     Dosage: UNK
  4. OXYGEN. [Concomitant]
     Active Substance: OXYGEN
     Dosage: UNK
  5. ACETYLSALICYLIC ACID [Concomitant]
     Active Substance: ASPIRIN
     Dosage: UNK
  6. MORPHINE SULFATE. [Suspect]
     Active Substance: MORPHINE SULFATE
     Indication: COUGH
     Dosage: 1.0 MG, ONCE DAILY
     Route: 065
  7. ESBRIET [Suspect]
     Active Substance: PIRFENIDONE
     Indication: IDIOPATHIC PULMONARY FIBROSIS
     Dosage: 89.0 MG, THRICE DAILY
     Route: 048
  8. ROSUVASTATIN. [Concomitant]
     Active Substance: ROSUVASTATIN
  9. ALLOPURINOL. [Concomitant]
     Active Substance: ALLOPURINOL
     Dosage: UNK
  10. BISOPROLOL [Concomitant]
     Active Substance: BISOPROLOL
     Dosage: UNK
  11. ESBRIET [Suspect]
     Active Substance: PIRFENIDONE
     Dosage: 178.0 MG, THRICE DAILY
     Route: 048

REACTIONS (14)
  - Constipation [Fatal]
  - Fatigue [Fatal]
  - Dyspnoea [Fatal]
  - Tooth infection [Fatal]
  - Off label use [Unknown]
  - Decreased appetite [Fatal]
  - Frustration tolerance decreased [Fatal]
  - Gait disturbance [Fatal]
  - Malaise [Fatal]
  - Nausea [Fatal]
  - Pulmonary function test abnormal [Fatal]
  - Cough [Fatal]
  - Asthenia [Fatal]
  - Drug ineffective for unapproved indication [Unknown]
